FAERS Safety Report 8937308 (Version 1)
Quarter: 2012Q4

REPORT INFORMATION
  Report Type: 
  Country: US (occurrence: US)
  Receive Date: 20121203
  Receipt Date: 20121203
  Transmission Date: 20130627
  Serious: No
  Sender: FDA-Public Use
  Company Number: US-B.I. PHARMACEUTICALS,INC./RIDGEFIELD-2012-BI-01489BP

PATIENT
  Sex: Female

DRUGS (7)
  1. SPIRIVA [Suspect]
     Indication: INTERSTITIAL LUNG DISEASE
     Dosage: 18 mcg
     Route: 055
     Dates: start: 201209
  2. PRISTIQ [Concomitant]
     Dosage: 50 mg
     Route: 048
  3. GABAPENTIN [Concomitant]
     Indication: INTERVERTEBRAL DISC COMPRESSION
     Dosage: 600 mg
     Route: 048
  4. WELCHOL [Concomitant]
     Indication: BLOOD CHOLESTEROL INCREASED
     Dosage: 2500 mg
     Route: 048
  5. TEGRETOL [Concomitant]
     Indication: OPTIC NERVE CUPPING
     Route: 048
  6. PREDNISONE [Concomitant]
     Indication: INTERSTITIAL LUNG DISEASE
     Dosage: 40 mg
     Route: 048
  7. LOVAZA [Concomitant]
     Indication: BLOOD CHOLESTEROL INCREASED
     Dosage: 4 g
     Route: 048

REACTIONS (1)
  - Dyspnoea [Not Recovered/Not Resolved]
